FAERS Safety Report 7413146-0 (Version None)
Quarter: 2011Q2

REPORT INFORMATION
  Report Type: 
  Country: None (occurrence: None)
  Receive Date: 20110413
  Receipt Date: 20110408
  Transmission Date: 20111010
  Serious: Yes (Hospitalization)
  Sender: FDA-Public Use
  Company Number: IT-PFIZER INC-2011078766

PATIENT
  Age: 68 Year
  Sex: Female

DRUGS (4)
  1. DAPAROX [Suspect]
     Indication: DEPRESSION
     Dosage: 40 MG DAILY
     Route: 048
     Dates: start: 20110215, end: 20110321
  2. SIVASTIN [Concomitant]
  3. XANAX [Suspect]
     Indication: DEPRESSION
     Dosage: 0.5 MG DAILY
     Route: 048
     Dates: start: 20110210, end: 20110304
  4. ZYPREXA [Suspect]
     Indication: DEPRESSION
     Dosage: 5MG DAILY
     Route: 048
     Dates: start: 20110210, end: 20110321

REACTIONS (3)
  - TREMOR [None]
  - FACE INJURY [None]
  - FALL [None]
